FAERS Safety Report 4452744-3 (Version None)
Quarter: 2004Q3

REPORT INFORMATION
  Report Type: 
  Country: None (occurrence: None)
  Receive Date: 20040813
  Receipt Date: 20040416
  Transmission Date: 20050211
  Serious: No
  Sender: FDA-Public Use
  Company Number: S04-USA-02922-01

PATIENT
  Age: 56 Year
  Sex: Female

DRUGS (12)
  1. NAMENDA [Suspect]
     Indication: LYME DISEASE
     Dosage: 5 MG QD PO
     Route: 048
     Dates: start: 20040323
  2. NAMENDA [Suspect]
     Indication: LYME DISEASE
     Dosage: 20 MG QD PO
     Route: 048
     Dates: end: 20040412
  3. NAMENDA [Suspect]
     Indication: LYME DISEASE
     Dosage: 10 MG QD PO
     Route: 048
     Dates: start: 20040413
  4. PAXIL [Concomitant]
  5. ZONERGAN (ZONISAMIDE) [Concomitant]
  6. ACTIGALL [Concomitant]
  7. CLONIDINE HCL [Concomitant]
  8. COUMADIN [Concomitant]
  9. OXYCONTIN [Concomitant]
  10. PROVIGIL [Concomitant]
  11. ATIVAN [Concomitant]
  12. IV ANTIBIOTICS [Concomitant]

REACTIONS (3)
  - DIZZINESS [None]
  - NEUROPATHY [None]
  - SOMNOLENCE [None]
